FAERS Safety Report 10098599 (Version 2)
Quarter: 2014Q2

REPORT INFORMATION
  Report Type: Report from Study
  Country: ID (occurrence: ID)
  Receive Date: 20140423
  Receipt Date: 20140507
  Transmission Date: 20141212
  Serious: Yes (Hospitalization, Disabling, Other)
  Sender: FDA-Public Use
  Company Number: ID-BAYER-2014-055147

PATIENT
  Sex: Male

DRUGS (2)
  1. NEXAVAR [Suspect]
     Indication: HEPATOCELLULAR CARCINOMA
     Dosage: 2X400 MG / DAY
     Route: 048
     Dates: start: 2013
  2. NEXAVAR [Suspect]
     Indication: HEPATOCELLULAR CARCINOMA
     Dosage: TOTAL DAILY DOSE: 400 MG, DOSE REGIMEN: 200 MG
     Route: 048
     Dates: start: 20140321

REACTIONS (5)
  - Cerebral thrombosis [None]
  - Lymphadenopathy [None]
  - Brain neoplasm [None]
  - Rash [None]
  - Herpes virus infection [None]
